FAERS Safety Report 15203160 (Version 1)
Quarter: 2018Q3

REPORT INFORMATION
  Report Type: Spontaneous
  Country: DE (occurrence: DE)
  Receive Date: 20180726
  Receipt Date: 20180726
  Transmission Date: 20181010
  Serious: Yes (Hospitalization)
  Sender: FDA-Public Use
  Company Number: DE-GLASSHOUSE PHARMACEUTICALS LIMITED CA-2018GLH00002

PATIENT
  Age: 55 Year
  Sex: Male

DRUGS (7)
  1. CLINDAMYCIN. [Suspect]
     Active Substance: CLINDAMYCIN
     Indication: PNEUMOCYSTIS JIROVECII PNEUMONIA
     Route: 065
  2. PRIMAQUIN [Concomitant]
     Indication: PNEUMOCYSTIS JIROVECII PNEUMONIA
     Route: 065
  3. CLINDAMYCIN. [Suspect]
     Active Substance: CLINDAMYCIN
     Indication: DENTAL OPERATION
  4. TENOFOVIR ALAFENAMIDE FUMARATE [Concomitant]
     Active Substance: TENOFOVIR ALAFENAMIDE FUMARATE
     Indication: HIV INFECTION
     Route: 065
  5. ELVITEGRAVIR [Concomitant]
     Active Substance: ELVITEGRAVIR
     Indication: HIV INFECTION
     Route: 065
  6. COBICISTAT [Concomitant]
     Active Substance: COBICISTAT
     Indication: HIV INFECTION
     Route: 065
  7. EMTRICITABANE [Concomitant]
     Indication: HIV INFECTION
     Route: 065

REACTIONS (1)
  - Anaphylactic reaction [Recovered/Resolved]
